FAERS Safety Report 12392840 (Version 2)
Quarter: 2016Q2

REPORT INFORMATION
  Report Type: Spontaneous
  Country: US (occurrence: US)
  Receive Date: 20160523
  Receipt Date: 20160620
  Transmission Date: 20160815
  Serious: Yes (Other)
  Sender: FDA-Public Use
  Company Number: US-009507513-1605USA010087

PATIENT

DRUGS (4)
  1. BRIDION [Suspect]
     Active Substance: SUGAMMADEX
     Dosage: 2 MG/KG, UNK
  2. ZEMURON [Suspect]
     Active Substance: ROCURONIUM BROMIDE
     Dosage: 200 MG, UNK
  3. VECURONIUM BROMIDE. [Suspect]
     Active Substance: VECURONIUM BROMIDE
     Dosage: 20 MG, UNK
  4. BRIDION [Suspect]
     Active Substance: SUGAMMADEX
     Dosage: 4 MG/KG, UNK

REACTIONS (1)
  - Paralysis [Recovered/Resolved]
